FAERS Safety Report 8141878-8 (Version None)
Quarter: 2012Q1

REPORT INFORMATION
  Report Type: 
  Country: None (occurrence: None)
  Receive Date: 20120216
  Receipt Date: 20111209
  Transmission Date: 20120608
  Serious: Yes (Hospitalization, Other)
  Sender: FDA-Public Use
  Company Number: HK-MUTUAL PHARMACEUTICAL COMPANY, INC.-CLHC20120016

PATIENT
  Age: 36 Year
  Sex: Female

DRUGS (2)
  1. CIMETIDINE [Concomitant]
     Indication: PRODUCT USED FOR UNKNOWN INDICATION
     Route: 065
  2. COLCHICINE [Suspect]
     Indication: PAIN IN EXTREMITY
     Route: 065

REACTIONS (28)
  - ABDOMINAL PAIN [None]
  - ILEUS PARALYTIC [None]
  - GASTROINTESTINAL HAEMORRHAGE [None]
  - ORGANISING PNEUMONIA [None]
  - PLEURAL EFFUSION [None]
  - THROMBOCYTOPENIA [None]
  - DIARRHOEA [None]
  - RESPIRATORY FAILURE [None]
  - ACUTE RESPIRATORY DISTRESS SYNDROME [None]
  - BLOOD ALKALINE PHOSPHATASE INCREASED [None]
  - OFF LABEL USE [None]
  - SELF-MEDICATION [None]
  - OVERDOSE [None]
  - CANDIDIASIS [None]
  - DEHYDRATION [None]
  - SINUS TACHYCARDIA [None]
  - LEFT VENTRICULAR DYSFUNCTION [None]
  - COLITIS ULCERATIVE [None]
  - FUNGAL INFECTION [None]
  - ALOPECIA [None]
  - HEART RATE INCREASED [None]
  - ELECTROCARDIOGRAM POOR R-WAVE PROGRESSION [None]
  - TROPONIN I INCREASED [None]
  - TOXICITY TO VARIOUS AGENTS [None]
  - IMMUNODEFICIENCY [None]
  - ALANINE AMINOTRANSFERASE INCREASED [None]
  - LEUKOPENIA [None]
  - ATELECTASIS [None]
